FAERS Safety Report 16798677 (Version 1)
Quarter: 2019Q3

REPORT INFORMATION
  Report Type: Spontaneous
  Country: US (occurrence: US)
  Receive Date: 20190912
  Receipt Date: 20190912
  Transmission Date: 20191005
  Serious: Yes (Other)
  Sender: FDA-Public Use
  Company Number: US-MYLANLABS-2019M1084395

PATIENT
  Age: 53 Year
  Sex: Female

DRUGS (2)
  1. QUININE [Suspect]
     Active Substance: QUININE
     Indication: BABESIOSIS
     Dosage: 650 MILLIGRAM
     Route: 048
  2. CLINDAMYCIN. [Concomitant]
     Active Substance: CLINDAMYCIN
     Indication: BABESIOSIS
     Dosage: 600 MILLIGRAM
     Route: 042

REACTIONS (2)
  - Haemolysis [Unknown]
  - Off label use [Unknown]
